FAERS Safety Report 8030367-7 (Version None)
Quarter: 2012Q1

REPORT INFORMATION
  Report Type: 
  Country: None (occurrence: None)
  Receive Date: 20120109
  Receipt Date: 20120109
  Transmission Date: 20120608
  Serious: Yes (Other)
  Sender: FDA-Public Use
  Company Number: None

PATIENT
  Age: 30 Year
  Sex: Female
  Weight: 58.059 kg

DRUGS (1)
  1. HUMIRA [Suspect]
     Indication: ANKYLOSING SPONDYLITIS
     Dosage: 40 MG
     Route: 058

REACTIONS (10)
  - PETECHIAE [None]
  - SEBORRHOEIC DERMATITIS [None]
  - NO THERAPEUTIC RESPONSE [None]
  - RESPIRATORY TRACT INFECTION [None]
  - DERMATITIS PSORIASIFORM [None]
  - RASH PUSTULAR [None]
  - FOLLICULITIS [None]
  - EPISCLERITIS [None]
  - RASH PRURITIC [None]
  - UVEITIS [None]
